FAERS Safety Report 6450440-4 (Version None)
Quarter: 2009Q4

REPORT INFORMATION
  Report Type: 
  Country: None (occurrence: None)
  Receive Date: 20091123
  Receipt Date: 20090924
  Transmission Date: 20100525
  Serious: No
  Sender: FDA-Public Use
  Company Number: US-BAYER-200935528NA

PATIENT
  Age: 62 Year
  Sex: Female
  Weight: 100 kg

DRUGS (3)
  1. ULTRAVIST 300 [Suspect]
     Indication: COMPUTERISED TOMOGRAM
     Dosage: TOTAL DAILY DOSE: 90 ML  UNIT DOSE: 200 ML
     Route: 042
     Dates: start: 20090924, end: 20090924
  2. ATROVENT [Concomitant]
  3. PREVACID [Concomitant]

REACTIONS (3)
  - CHOKING SENSATION [None]
  - NAUSEA [None]
  - VOMITING [None]
